FAERS Safety Report 10567916 (Version 1)
Quarter: 2014Q4

REPORT INFORMATION
  Report Type: Spontaneous
  Country: US (occurrence: US)
  Receive Date: 20141106
  Receipt Date: 20141106
  Transmission Date: 20150529
  Serious: No
  Sender: FDA-Public Use
  Company Number: US-LEO PHARMA-230436

PATIENT
  Sex: Female

DRUGS (2)
  1. PICATO [Suspect]
     Active Substance: INGENOL MEBUTATE
     Indication: ACTINIC KERATOSIS
     Route: 061
     Dates: start: 20141024, end: 20141025
  2. PICATO [Suspect]
     Active Substance: INGENOL MEBUTATE
     Indication: ACTINIC KERATOSIS
     Route: 061
     Dates: start: 20141024, end: 20141026

REACTIONS (9)
  - Blister rupture [Recovering/Resolving]
  - Application site vesicles [Recovering/Resolving]
  - Oropharyngeal pain [Recovering/Resolving]
  - Application site erythema [Recovering/Resolving]
  - Incorrect dose administered [Unknown]
  - Inappropriate schedule of drug administration [Unknown]
  - Drug administered at inappropriate site [Unknown]
  - Nasopharyngitis [Recovering/Resolving]
  - Application site swelling [Recovering/Resolving]

NARRATIVE: CASE EVENT DATE: 20141024
